FAERS Safety Report 17230522 (Version 2)
Quarter: 2020Q1

REPORT INFORMATION
  Report Type: Report from Study
  Country: US (occurrence: US)
  Receive Date: 20200103
  Receipt Date: 20200127
  Transmission Date: 20200409
  Serious: No
  Sender: FDA-Public Use
  Company Number: US-ASTRAZENECA-2019SF78546

PATIENT
  Sex: Male
  Weight: 78.9 kg

DRUGS (1)
  1. BYDUREON [Suspect]
     Active Substance: EXENATIDE
     Indication: DIABETES MELLITUS
     Route: 065

REACTIONS (6)
  - Panic reaction [Unknown]
  - Injection site extravasation [Unknown]
  - Injection site mass [Unknown]
  - Device issue [Unknown]
  - Injection site nodule [Unknown]
  - Incorrect dose administered [Unknown]
